FAERS Safety Report 12668863 (Version 2)
Quarter: 2016Q3

REPORT INFORMATION
  Report Type: Spontaneous
  Country: JP (occurrence: JP)
  Receive Date: 20160819
  Receipt Date: 20160913
  Transmission Date: 20161109
  Serious: Yes (Hospitalization)
  Sender: FDA-Public Use
  Company Number: JP-TEVA-2016-JP-001818J

PATIENT
  Age: 13 Year
  Sex: Female

DRUGS (2)
  1. AZITHROMYCIN TABLET 250MG ^TEVA^ [Suspect]
     Active Substance: AZITHROMYCIN ANHYDROUS
     Indication: PRODUCT USED FOR UNKNOWN INDICATION
     Dosage: 1500 MILLIGRAM DAILY;
     Route: 048
     Dates: start: 20160728, end: 20160728
  2. CALONAL [Suspect]
     Active Substance: ACETAMINOPHEN
     Indication: PRODUCT USED FOR UNKNOWN INDICATION
     Route: 048
     Dates: start: 20160728, end: 20160728

REACTIONS (6)
  - Loss of consciousness [Unknown]
  - Blood alkaline phosphatase increased [Recovered/Resolved]
  - White blood cell count increased [Recovered/Resolved]
  - Overdose [Unknown]
  - Blood lactate dehydrogenase increased [Recovered/Resolved]
  - Fall [Unknown]

NARRATIVE: CASE EVENT DATE: 20160728
